FAERS Safety Report 4336517-8 (Version None)
Quarter: 2004Q2

REPORT INFORMATION
  Report Type: 
  Country: None (occurrence: None)
  Receive Date: 20040407
  Receipt Date: 20040324
  Transmission Date: 20050107
  Serious: Yes (Disabling, Other)
  Sender: FDA-Public Use
  Company Number: US_0403101811

PATIENT
  Age: 28 Year
  Sex: Male
  Weight: 77 kg

DRUGS (2)
  1. HUMULIN R [Suspect]
     Indication: DIABETES MELLITUS
     Dates: start: 19820101, end: 20020101
  2. HUMULIN N [Suspect]
     Indication: DIABETES MELLITUS
     Dates: start: 19820101, end: 20020101

REACTIONS (5)
  - BLINDNESS [None]
  - FACE INJURY [None]
  - FACIAL BONES FRACTURE [None]
  - HAEMORRHAGE [None]
  - VISUAL ACUITY REDUCED [None]
